FAERS Safety Report 4455086-5 (Version None)
Quarter: 2004Q3

REPORT INFORMATION
  Report Type: 
  Country: None (occurrence: None)
  Receive Date: 20040917
  Receipt Date: 20040917
  Transmission Date: 20050211
  Serious: Yes (Other)
  Sender: FDA-Public Use
  Company Number: WAES 0409USA00040

PATIENT
  Sex: Male

DRUGS (8)
  1. COZAAR [Suspect]
     Indication: HYPERTENSION
     Dosage: 50MG/DAILY
     Route: 048
     Dates: start: 20011031
  2. CALSLOT [Concomitant]
  3. EPADEL [Concomitant]
  4. MUCOSOLVAN-L [Concomitant]
  5. SANDONORM [Concomitant]
  6. SINGULAIR [Concomitant]
  7. VENTOLIN [Concomitant]
  8. AMBROXOL HYDROCHLORIDE [Concomitant]

REACTIONS (2)
  - GLUCOSE URINE PRESENT [None]
  - PLATELET COUNT DECREASED [None]
